FAERS Safety Report 26006489 (Version 2)
Quarter: 2025Q4

REPORT INFORMATION
  Report Type: Spontaneous
  Country: GB (occurrence: GB)
  Receive Date: 20251106
  Receipt Date: 20251217
  Transmission Date: 20260118
  Serious: Yes (Other)
  Sender: NOVARTIS
  Company Number: GB-002147023-NVSC2025GB166943

PATIENT
  Sex: Female

DRUGS (1)
  1. TEGRETOL [Suspect]
     Active Substance: CARBAMAZEPINE
     Indication: Product used for unknown indication
     Dosage: UNK (3 IN THE MORNING AND 3 AT NIGHT, 600 MG AND 600 MG)
     Route: 065

REACTIONS (3)
  - Brain injury [Unknown]
  - Arthritis [Unknown]
  - Product blister packaging issue [Unknown]
